FAERS Safety Report 4576251-2 (Version None)
Quarter: 2005Q1

REPORT INFORMATION
  Report Type: 
  Country: None (occurrence: None)
  Receive Date: 20050207
  Receipt Date: 20050127
  Transmission Date: 20050727
  Serious: Yes (Hospitalization, Other)
  Sender: FDA-Public Use
  Company Number: 2005-01-1861

PATIENT
  Age: 37 Year
  Sex: Female

DRUGS (1)
  1. CLARINEX [Suspect]
     Dosage: 1 TAB DAILY ORAL
     Route: 048
     Dates: start: 20040301, end: 20050101

REACTIONS (1)
  - ARRHYTHMIA [None]
